FAERS Safety Report 8224602 (Version 5)
Quarter: 2014Q3

REPORT INFORMATION
  Report Type: Other
  Country: US (occurrence: US)
  Receive Date: 20111103
  Receipt Date: 20140728
  Transmission Date: 20150326
  Serious: Yes (Congenital Anomaly)
  Sender: FDA-Public Use
  Company Number: US-RANBAXY-2011US-50102

PATIENT
  Sex: Male
  Weight: 2.7 kg

DRUGS (6)
  1. NORVIR [Suspect]
     Active Substance: RITONAVIR
     Indication: MATERNAL USE OF ILLICIT DRUGS
     Dosage: 200 MG/DAY
     Route: 064
     Dates: start: 20110428, end: 20110510
  2. PREZISTA [Suspect]
     Active Substance: DARUNAVIR ETHANOLATE
     Indication: MATERNAL USE OF ILLICIT DRUGS
     Dosage: 800 MG/DAY
     Route: 064
     Dates: start: 20110428
  3. COMBIVIR [Suspect]
     Active Substance: LAMIVUDINE\ZIDOVUDINE
     Indication: MATERNAL USE OF ILLICIT DRUGS
     Dosage: UNK
     Route: 064
     Dates: start: 20110421, end: 20110915
  4. KALETRA, ALUVIA, LPV/R (LOPINAVIR + RITONAVIR) [Suspect]
     Active Substance: LOPINAVIR\RITONAVIR
     Indication: MATERNAL USE OF ILLICIT DRUGS
     Dosage: UNK
     Route: 064
     Dates: start: 20110421, end: 20110428
  5. ZIDOVUDINE. [Suspect]
     Active Substance: ZIDOVUDINE
     Indication: MATERNAL USE OF ILLICIT DRUGS
     Dosage: 2.0 MG/DAY
     Route: 064
     Dates: start: 20110915, end: 20110915
  6. NORVIR [Suspect]
     Active Substance: RITONAVIR
     Indication: MATERNAL USE OF ILLICIT DRUGS
     Dosage: 100 MG/DAY
     Route: 064
     Dates: start: 20110511

REACTIONS (4)
  - Foetal growth restriction [Recovered/Resolved]
  - Maternal drugs affecting foetus [None]
  - Premature baby [Recovered/Resolved]
  - Foetal exposure during pregnancy [Recovered/Resolved]
